FAERS Safety Report 19168295 (Version 1)
Quarter: 2021Q2

REPORT INFORMATION
  Report Type: Spontaneous
  Country: US (occurrence: US)
  Receive Date: 20210422
  Receipt Date: 20210422
  Transmission Date: 20210717
  Serious: Yes (Hospitalization, Other)
  Sender: FDA-Public Use
  Company Number: US-COVIS PHARMA GMBH-2021COV00180

PATIENT
  Age: 49 Year
  Sex: Female
  Weight: 88 kg

DRUGS (12)
  1. CELEXA [Concomitant]
     Active Substance: CITALOPRAM HYDROBROMIDE
  2. GUAIFENESIN. [Concomitant]
     Active Substance: GUAIFENESIN
  3. BACLOFEN. [Concomitant]
     Active Substance: BACLOFEN
  4. VITAMIN E [Concomitant]
     Active Substance: .ALPHA.-TOCOPHEROL
  5. LOVENOX [Concomitant]
     Active Substance: ENOXAPARIN SODIUM
  6. MIRALAX [Concomitant]
     Active Substance: POLYETHYLENE GLYCOL 3350
  7. REQUIP [Concomitant]
     Active Substance: ROPINIROLE HYDROCHLORIDE
  8. RADICAVA [Concomitant]
     Active Substance: EDARAVONE
  9. ACETYL L?CARNITINE [Concomitant]
     Active Substance: ACETYLCARNITINE
  10. RILUTEK [Suspect]
     Active Substance: RILUZOLE
     Indication: AMYOTROPHIC LATERAL SCLEROSIS
     Dosage: UNK
     Route: 048
     Dates: start: 20200817
  11. NORMAL SALINE [Concomitant]
     Active Substance: SODIUM CHLORIDE
  12. NUEDEXTA [Concomitant]
     Active Substance: DEXTROMETHORPHAN HYDROBROMIDE\QUINIDINE SULFATE

REACTIONS (5)
  - Vomiting [Unknown]
  - Nausea [Unknown]
  - Pancreatitis acute [Unknown]
  - Constipation [Not Recovered/Not Resolved]
  - Abdominal pain lower [Not Recovered/Not Resolved]

NARRATIVE: CASE EVENT DATE: 20210221
